FAERS Safety Report 15587202 (Version 2)
Quarter: 2018Q4

REPORT INFORMATION
  Report Type: Spontaneous
  Country: KR (occurrence: KR)
  Receive Date: 20181105
  Receipt Date: 20181116
  Transmission Date: 20190205
  Serious: Yes (Hospitalization, Other)
  Sender: FDA-Public Use
  Company Number: AR-IMPAX LABORATORIES, LLC-2018-IPXL-03551

PATIENT
  Age: 78 Year
  Sex: Male

DRUGS (2)
  1. CARBIDOPA-LEVODOPA ER [Suspect]
     Active Substance: CARBIDOPA\LEVODOPA
     Indication: PARKINSON^S DISEASE
     Dosage: UNK, 3 TIMES A DAY AT 7 AM, 1 PM, AND 7 PM (900 MG, DAILY)
     Route: 065
  2. CARBIDOPA-LEVODOPA ER [Suspect]
     Active Substance: CARBIDOPA\LEVODOPA
     Dosage: UNK (DOSE REDUCED)
     Route: 065

REACTIONS (5)
  - Gait disturbance [Recovering/Resolving]
  - Balance disorder [Recovering/Resolving]
  - Bradykinesia [Recovering/Resolving]
  - Respiratory disorder [Recovering/Resolving]
  - Muscle rigidity [Recovering/Resolving]
